FAERS Safety Report 8596268-0 (Version None)
Quarter: 2012Q3

REPORT INFORMATION
  Report Type: 
  Country: None (occurrence: None)
  Receive Date: 20120815
  Receipt Date: 20120801
  Transmission Date: 20120928
  Serious: Yes (Death)
  Sender: FDA-Public Use
  Company Number: US-ARROW-2012-13896

PATIENT
  Age: 17 Year
  Sex: Female

DRUGS (1)
  1. IBUPROFEN [Suspect]
     Indication: INTENTIONAL OVERDOSE
     Dosage: 200 G, SINGLE
     Route: 048

REACTIONS (12)
  - UNRESPONSIVE TO STIMULI [None]
  - HYPOTENSION [None]
  - METABOLIC ACIDOSIS [None]
  - HYPOTHERMIA [None]
  - ATRIOVENTRICULAR DISSOCIATION [None]
  - MULTI-ORGAN FAILURE [None]
  - HYPOGLYCAEMIA [None]
  - HYPERKALAEMIA [None]
  - INTENTIONAL OVERDOSE [None]
  - THROMBOCYTOPENIA [None]
  - ELECTROCARDIOGRAM QT PROLONGED [None]
  - DISSEMINATED INTRAVASCULAR COAGULATION [None]
